FAERS Safety Report 9914521 (Version 1)
Quarter: 2014Q1

REPORT INFORMATION
  Report Type: Spontaneous
  Country: US (occurrence: US)
  Receive Date: 20140220
  Receipt Date: 20140220
  Transmission Date: 20141002
  Serious: No
  Sender: FDA-Public Use
  Company Number: US-TARO-2013P1005573

PATIENT
  Age: 89 Year
  Sex: Male

DRUGS (1)
  1. FLUOCINONIDE 0.05% [Suspect]
     Indication: SEBORRHOEIC DERMATITIS
     Route: 061
     Dates: start: 201303

REACTIONS (1)
  - Vision blurred [Not Recovered/Not Resolved]
